FAERS Safety Report 18561782 (Version 1)
Quarter: 2020Q4

REPORT INFORMATION
  Report Type: Spontaneous
  Country: US (occurrence: US)
  Receive Date: 20201130
  Receipt Date: 20201130
  Transmission Date: 20210114
  Serious: No
  Sender: FDA-Public Use
  Company Number: US-ROCHE-2617819

PATIENT
  Sex: Female

DRUGS (2)
  1. HERCEPTIN [Suspect]
     Active Substance: TRASTUZUMAB
     Indication: BREAST CANCER FEMALE
     Dosage: STRENGTH : 150 MG/ML
     Route: 041
     Dates: start: 20191105
  2. PERJETA [Suspect]
     Active Substance: PERTUZUMAB
     Indication: BREAST CANCER FEMALE
     Dosage: STRENGTH : 420 MG/14 ML
     Route: 042
     Dates: start: 20191105

REACTIONS (6)
  - Paraesthesia [Unknown]
  - Yellow skin [Unknown]
  - Arthralgia [Unknown]
  - Pain [Unknown]
  - Insomnia [Unknown]
  - Hypoaesthesia [Unknown]
